FAERS Safety Report 4459321-9 (Version None)
Quarter: 2004Q3

REPORT INFORMATION
  Report Type: 
  Country: None (occurrence: None)
  Receive Date: 20040927
  Receipt Date: 20040922
  Transmission Date: 20050211
  Serious: Yes (Disabling, Other)
  Sender: FDA-Public Use
  Company Number: GB-MERCK-0409GBR00221

PATIENT
  Age: 68 Year
  Sex: Male
  Weight: 66 kg

DRUGS (4)
  1. FOSAMAX [Suspect]
     Indication: OSTEOPOROSIS
     Route: 048
     Dates: start: 20040907, end: 20040913
  2. CALCIUM CARBONATE AND CHOLECALCIFEROL [Concomitant]
     Route: 065
     Dates: start: 20040824
  3. CARBIDOPA AND LEVODOPA [Concomitant]
     Route: 048
     Dates: start: 20040614
  4. SELEGILINE [Concomitant]
     Route: 065
     Dates: start: 20030616

REACTIONS (1)
  - PARKINSON'S DISEASE [None]
